FAERS Safety Report 24426072 (Version 3)
Quarter: 2024Q4

REPORT INFORMATION
  Report Type: Spontaneous
  Country: PL (occurrence: PL)
  Receive Date: 20241011
  Receipt Date: 20241029
  Transmission Date: 20250115
  Serious: Yes (Hospitalization)
  Sender: ALKEM
  Company Number: PL-ALKEM LABORATORIES LIMITED-PL-ALKEM-2024-23196

PATIENT
  Age: 26 Year
  Sex: Female

DRUGS (25)
  1. IBUPROFEN [Suspect]
     Active Substance: IBUPROFEN
     Indication: Persistent genital arousal disorder
     Dosage: 200 MILLIGRAM (FILM-COATED TABLETS)
     Route: 065
  2. IBUPROFEN [Suspect]
     Active Substance: IBUPROFEN
     Dosage: 50 MILLIGRAM PER GRAM (GEL)
     Route: 065
  3. IBUPROFEN [Suspect]
     Active Substance: IBUPROFEN
     Dosage: 400 MG (FILM-COATED TABLETS)
     Route: 065
  4. AMOXICILLIN [Suspect]
     Active Substance: AMOXICILLIN
     Indication: Persistent genital arousal disorder
     Dosage: UNK (TABLET)
     Route: 065
  5. CETIRIZINE HYDROCHLORIDE [Suspect]
     Active Substance: CETIRIZINE HYDROCHLORIDE
     Indication: Persistent genital arousal disorder
     Dosage: 10 MILLIGRAM (FILM-COATED TABLETS)
     Route: 065
  6. CIPROFLOXACIN [Suspect]
     Active Substance: CIPROFLOXACIN
     Indication: Persistent genital arousal disorder
     Dosage: UNK
     Route: 065
  7. CLOTRIMAZOLE [Suspect]
     Active Substance: CLOTRIMAZOLE
     Indication: Persistent genital arousal disorder
     Dosage: UNK
     Route: 067
  8. FLUCONAZOLE [Suspect]
     Active Substance: FLUCONAZOLE
     Indication: Persistent genital arousal disorder
     Dosage: UNK (50 MG CAPSULES, HARD)
     Route: 048
  9. FLUCONAZOLE [Suspect]
     Active Substance: FLUCONAZOLE
     Dosage: UNK (100 MG, CAPSULES, HARD)
     Route: 048
  10. FLUCONAZOLE [Suspect]
     Active Substance: FLUCONAZOLE
     Dosage: UNK (150 MG, CAPSULES, HARD)
     Route: 048
  11. FLUCONAZOLE [Suspect]
     Active Substance: FLUCONAZOLE
     Dosage: UNK (200 MG, CAPSULES, HARD)
     Route: 048
  12. ACETAMINOPHEN [Suspect]
     Active Substance: ACETAMINOPHEN
     Indication: Persistent genital arousal disorder
     Dosage: UNK (500 MILLIGRAM TABLETS)
     Route: 065
  13. ACETAMINOPHEN [Suspect]
     Active Substance: ACETAMINOPHEN
     Dosage: UNK (500 MILLIGRAM GRANULES IN A SACHET))
     Route: 065
  14. ACETAMINOPHEN\CODEINE PHOSPHATE [Suspect]
     Active Substance: ACETAMINOPHEN\CODEINE PHOSPHATE
     Indication: Persistent genital arousal disorder
     Dosage: UNK
     Route: 065
  15. ALPRAZOLAM [Interacting]
     Active Substance: ALPRAZOLAM
     Indication: Persistent genital arousal disorder
     Dosage: 0.5 MILLIGRAM, TID
     Route: 065
  16. HERBALS\WITHANIA SOMNIFERA ROOT [Suspect]
     Active Substance: HERBALS\WITHANIA SOMNIFERA ROOT
     Indication: Persistent genital arousal disorder
     Dosage: UNK
     Route: 065
  17. CODEINE [Suspect]
     Active Substance: CODEINE
     Indication: Persistent genital arousal disorder
     Dosage: UNK
     Route: 065
  18. CRANBERRY [Suspect]
     Active Substance: CRANBERRY
     Indication: Persistent genital arousal disorder
     Dosage: UNK
     Route: 065
  19. FURAZIDINE [Suspect]
     Active Substance: FURAZIDINE
     Indication: Persistent genital arousal disorder
     Dosage: UNK (50 MG OR 100 MILLIGRAM TABLETS)
     Route: 065
  20. GENTAMICIN [Suspect]
     Active Substance: GENTAMICIN
     Indication: Persistent genital arousal disorder
     Dosage: UNK
     Route: 065
  21. HYDROXYZINE [Suspect]
     Active Substance: HYDROXYZINE HYDROCHLORIDE
     Indication: Persistent genital arousal disorder
     Dosage: UNK ( 10 MG OR 25 MG FILM-COATED TABLETS)
     Route: 065
  22. HERBALS [Suspect]
     Active Substance: HERBALS
     Indication: Persistent genital arousal disorder
     Dosage: UNK
     Route: 065
  23. NATAMYCIN [Suspect]
     Active Substance: NATAMYCIN
     Indication: Persistent genital arousal disorder
     Dosage: UNK
     Route: 067
  24. TIANEPTINE [Suspect]
     Active Substance: TIANEPTINE
     Indication: Persistent genital arousal disorder
     Dosage: UNK
     Route: 065
  25. SERTRALINE [Concomitant]
     Active Substance: SERTRALINE HYDROCHLORIDE
     Indication: Persistent genital arousal disorder
     Dosage: UNK
     Route: 065

REACTIONS (1)
  - Persistent genital arousal disorder [Recovered/Resolved]
